FAERS Safety Report 7885200-0 (Version None)
Quarter: 2011Q4

REPORT INFORMATION
  Report Type: 
  Country: None (occurrence: None)
  Receive Date: 20111102
  Receipt Date: 20111020
  Transmission Date: 20120403
  Serious: Yes (Hospitalization, Other)
  Sender: FDA-Public Use
  Company Number: DE-MYLANLABS-2011S1022179

PATIENT
  Sex: Female

DRUGS (6)
  1. CISPLATIN [Concomitant]
     Indication: NASOPHARYNGEAL CANCER
     Dosage: 100 MG/M2 ON DAY 1
     Route: 065
     Dates: start: 20090601
  2. FLUOROURACIL [Suspect]
     Indication: NASOPHARYNGEAL CANCER
     Dosage: 1000 MG/M2/DAY FOR 5 CONSECUTIVE DAYS
     Route: 065
     Dates: start: 20090601
  3. FOLIC ACID [Concomitant]
     Indication: NASOPHARYNGEAL CANCER
     Dosage: 25 MG/M2 EVERY 6H FOR A TOTAL OF 6 DOSES
     Route: 065
     Dates: start: 20090601
  4. PACLITAXEL [Concomitant]
     Indication: NASOPHARYNGEAL CANCER
     Route: 065
     Dates: start: 20090801
  5. CISPLATIN [Concomitant]
     Route: 065
     Dates: start: 20090801
  6. EPIRUBICIN [Concomitant]
     Indication: NASOPHARYNGEAL CANCER
     Route: 065
     Dates: start: 20090801

REACTIONS (25)
  - BONE MARROW FAILURE [None]
  - MUCOSAL INFLAMMATION [None]
  - LACTIC ACIDOSIS [None]
  - PARAESTHESIA [None]
  - ENCEPHALOPATHY [None]
  - HYPERBILIRUBINAEMIA [None]
  - HALLUCINATION [None]
  - EYELID PTOSIS [None]
  - LIVER DISORDER [None]
  - PUPILLARY LIGHT REFLEX TESTS ABNORMAL [None]
  - OESOPHAGEAL STENOSIS [None]
  - PERICARDIAL EFFUSION [None]
  - MIOSIS [None]
  - ASCITES [None]
  - VISUAL ACUITY REDUCED [None]
  - PLEURAL EFFUSION [None]
  - HYPOALBUMINAEMIA [None]
  - DYSARTHRIA [None]
  - VITAMIN B1 DEFICIENCY [None]
  - ENCEPHALITIS [None]
  - COAGULOPATHY [None]
  - OEDEMA PERIPHERAL [None]
  - ELECTROLYTE IMBALANCE [None]
  - NEUROPATHY PERIPHERAL [None]
  - NERVE ROOT LESION [None]
